FAERS Safety Report 6095149-4 (Version None)
Quarter: 2009Q1

REPORT INFORMATION
  Report Type: 
  Country: None (occurrence: None)
  Receive Date: 20090227
  Receipt Date: 20080124
  Transmission Date: 20090719
  Serious: No
  Sender: FDA-Public Use
  Company Number: A0706417A

PATIENT
  Age: 46 Year
  Sex: Female
  Weight: 81.8 kg

DRUGS (11)
  1. LAMICTAL [Suspect]
     Indication: DEPRESSION
     Dates: start: 20071210, end: 20071225
  2. CHANTIX [Suspect]
     Indication: SMOKING CESSATION THERAPY
     Dosage: 1MG TWICE PER DAY
     Dates: start: 20071127
  3. NEURONTIN [Suspect]
     Indication: AGITATION
     Dosage: 300MG THREE TIMES PER DAY
     Dates: start: 20071217, end: 20071225
  4. VICODIN [Concomitant]
  5. XANAX [Concomitant]
  6. NEXIUM [Concomitant]
  7. ZONISAMIDE [Concomitant]
  8. TOPROL-XL [Concomitant]
  9. BENICAR HCT [Concomitant]
  10. LIPITOR [Concomitant]
  11. ACETYLSALICYLIC ACID SRT [Concomitant]

REACTIONS (10)
  - ANOREXIA [None]
  - CRYING [None]
  - DIZZINESS [None]
  - FEELING ABNORMAL [None]
  - HEADACHE [None]
  - SOMNOLENCE [None]
  - STRESS [None]
  - VIRAL INFECTION [None]
  - VOMITING [None]
  - WEIGHT INCREASED [None]
